FAERS Safety Report 18772975 (Version 1)
Quarter: 2021Q1

REPORT INFORMATION
  Report Type: Spontaneous
  Country: US (occurrence: US)
  Receive Date: 20210121
  Receipt Date: 20210121
  Transmission Date: 20210419
  Serious: No
  Sender: FDA-Public Use
  Company Number: None

PATIENT

DRUGS (2)
  1. ROSUVASTATIN. [Suspect]
     Active Substance: ROSUVASTATIN
     Dosage: ?          OTHER FREQUENCY:EVERY EVENING;?
     Route: 048
     Dates: end: 20210118
  2. METOPROLOL. [Suspect]
     Active Substance: METOPROLOL

REACTIONS (5)
  - Fatigue [None]
  - Blood pressure decreased [None]
  - Dizziness [None]
  - Somnolence [None]
  - Pain [None]

NARRATIVE: CASE EVENT DATE: 20210119
